FAERS Safety Report 8765607 (Version 1)
Quarter: 2012Q4

REPORT INFORMATION
  Report Type: 
  Country: US (occurrence: US)
  Receive Date: 20120903
  Receipt Date: 20120903
  Transmission Date: 20130627
  Serious: Yes (Other)
  Sender: FDA-Public Use
  Company Number: US-BAYER-2012-090918

PATIENT
  Age: 29 Year
  Sex: Female
  Weight: 65 kg

DRUGS (1)
  1. ALKA-SELTZER PLUS COLD FORMULA ORANGE ZEST [Suspect]
     Dosage: 2 UNK, UNK
     Route: 048
     Dates: start: 20120826, end: 20120829

REACTIONS (4)
  - Haematochezia [Not Recovered/Not Resolved]
  - Tinnitus [Recovered/Resolved]
  - Dizziness [Recovered/Resolved]
  - Somnolence [Recovered/Resolved]
